FAERS Safety Report 24754673 (Version 1)
Quarter: 2024Q4

REPORT INFORMATION
  Report Type: Spontaneous
  Country: CN (occurrence: CN)
  Receive Date: 20241219
  Receipt Date: 20241219
  Transmission Date: 20250115
  Serious: Yes (Hospitalization, Other)
  Sender: BAXTER
  Company Number: None

PATIENT
  Age: 5 Year
  Sex: Male
  Weight: 17.4 kg

DRUGS (6)
  1. CYCLOPHOSPHAMIDE [Suspect]
     Active Substance: CYCLOPHOSPHAMIDE
     Indication: Acute lymphocytic leukaemia
     Dosage: 0.73G, ONCE, DILUTED WITH (4:1) GLUCOSE AND 250 ML OF 0.9% SODIUM CHLORIDE INJECTION
     Route: 041
     Dates: start: 20240904, end: 20240904
  2. DEXTROSE [Suspect]
     Active Substance: DEXTROSE MONOHYDRATE
     Indication: Medication dilution
     Dosage: (4:1) GLUCOSE AND (0.9%) 250 ML SODIUM CHLORIDE INJECTION, ONCE, USED TO DILUTE 0.73G CYCLOPHOSPHAMI
     Route: 041
     Dates: start: 20240904, end: 20240904
  3. DEXTROSE [Suspect]
     Active Substance: DEXTROSE MONOHYDRATE
     Dosage: (4:1) GLUCOSE AND (0.9%) 100 ML SODIUM CHLORIDE INJECTION, Q12H, USED TO DILUTE 0.73G CYTARABINE
     Route: 041
     Dates: start: 20240904, end: 20240907
  4. SODIUM CHLORIDE [Suspect]
     Active Substance: SODIUM CHLORIDE
     Indication: Medication dilution
     Dosage: (4:1) GLUCOSE AND (0.9%) 250 ML SODIUM CHLORIDE INJECTION, ONCE, USED TO DILUTE 0.73G CYCLOPHOSPHAMI
     Route: 041
     Dates: start: 20240904, end: 20240904
  5. SODIUM CHLORIDE [Suspect]
     Active Substance: SODIUM CHLORIDE
     Dosage: (4:1) GLUCOSE AND (0.9%) 100 ML SODIUM CHLORIDE INJECTION, Q12H, USED TO DILUTE 0.73G CYTARABINE
     Route: 041
     Dates: start: 20240904, end: 20240907
  6. CYTARABINE [Suspect]
     Active Substance: CYTARABINE
     Indication: Acute lymphocytic leukaemia
     Dosage: 0.73G, Q12H, DILUTED WITH (4:1) GLUCOSE AND 100 ML OF 0.9% SODIUM CHLORIDE INJECTION
     Route: 041
     Dates: start: 20240904, end: 20240907

REACTIONS (1)
  - Myelosuppression [Recovering/Resolving]

NARRATIVE: CASE EVENT DATE: 20240913
